FAERS Safety Report 9808575 (Version 2)
Quarter: 2014Q3

REPORT INFORMATION
  Report Type: Spontaneous
  Country: US (occurrence: US)
  Receive Date: 20140110
  Receipt Date: 20140804
  Transmission Date: 20150326
  Serious: Yes (Hospitalization, Other)
  Sender: FDA-Public Use
  Company Number: US-009507513-1401USA003350

PATIENT
  Sex: Female
  Weight: 79.82 kg

DRUGS (2)
  1. NUVARING [Suspect]
     Active Substance: ETHINYL ESTRADIOL\ETONOGESTREL
     Indication: CONTRACEPTION
     Dosage: 0.015MG/0.120MG, 1 RING EVERY 4 WEEKS
     Route: 067
     Dates: start: 20121010, end: 20121021
  2. NICOTINE. [Concomitant]
     Active Substance: NICOTINE
     Indication: TOBACCO ABUSE
     Dosage: UNK
     Dates: start: 20121021

REACTIONS (7)
  - Hyperbilirubinaemia [Recovered/Resolved]
  - Pulmonary embolism [Unknown]
  - Lung neoplasm malignant [Unknown]
  - Pneumonia [Unknown]
  - Dehydration [Unknown]
  - Hypomagnesaemia [Unknown]
  - Acute respiratory failure [Unknown]

NARRATIVE: CASE EVENT DATE: 20121021
